FAERS Safety Report 5951985-3 (Version None)
Quarter: 2008Q4

REPORT INFORMATION
  Report Type: 
  Country: None (occurrence: None)
  Receive Date: 20081113
  Receipt Date: 20071018
  Transmission Date: 20090506
  Serious: No
  Sender: FDA-Public Use
  Company Number: A0688488A

PATIENT
  Age: 67 Year
  Sex: Male

DRUGS (7)
  1. COREG [Suspect]
     Indication: ATRIAL FIBRILLATION
     Dosage: 12.5MG TWICE PER DAY
     Route: 048
     Dates: start: 20040101, end: 20071013
  2. COREG CR [Suspect]
     Indication: HEART RATE INCREASED
     Dosage: 40MG PER DAY
     Route: 048
     Dates: start: 20071014
  3. VASOTEC [Concomitant]
  4. FUROSEMIDE [Concomitant]
  5. LIPITOR [Concomitant]
  6. COUMADIN [Concomitant]
  7. POTASSIUM CHLORIDE [Concomitant]

REACTIONS (2)
  - DIZZINESS [None]
  - FATIGUE [None]
